FAERS Safety Report 7355040-X (Version None)
Quarter: 2011Q1

REPORT INFORMATION
  Report Type: 
  Country: None (occurrence: None)
  Receive Date: 20110316
  Receipt Date: 20110304
  Transmission Date: 20110831
  Serious: Yes (Other)
  Sender: FDA-Public Use
  Company Number: JP-JNJFOC-20110105645

PATIENT
  Sex: Female
  Weight: 43 kg

DRUGS (5)
  1. REMICADE [Suspect]
     Indication: COLITIS ULCERATIVE
     Route: 042
  2. REMICADE [Suspect]
     Route: 042
  3. UNKNOWN ADRENAL HORMONE PREPARATIONS [Concomitant]
     Route: 048
  4. REMICADE [Suspect]
     Route: 042
  5. REMICADE [Suspect]
     Route: 042

REACTIONS (2)
  - UPPER RESPIRATORY TRACT INFLAMMATION [None]
  - PNEUMONIA [None]
